FAERS Safety Report 5797665-9 (Version None)
Quarter: 2008Q3

REPORT INFORMATION
  Report Type: 
  Country: None (occurrence: None)
  Receive Date: 20080702
  Receipt Date: 20080624
  Transmission Date: 20090109
  Serious: Yes (Hospitalization)
  Sender: FDA-Public Use
  Company Number: ES-JNJFOC-20080605875

PATIENT
  Age: 68 Year
  Sex: Female

DRUGS (3)
  1. REMICADE [Suspect]
     Route: 042
  2. REMICADE [Suspect]
     Indication: RHEUMATOID ARTHRITIS
     Route: 042
  3. METHOTREXATE [Interacting]
     Indication: RHEUMATOID ARTHRITIS
     Route: 048

REACTIONS (2)
  - ACUTE INTERSTITIAL PNEUMONITIS [None]
  - DRUG INTERACTION [None]
